FAERS Safety Report 8383167-2 (Version None)
Quarter: 2012Q2

REPORT INFORMATION
  Report Type: 
  Country: None (occurrence: None)
  Receive Date: 20120524
  Receipt Date: 20120516
  Transmission Date: 20120825
  Serious: Yes (Other)
  Sender: FDA-Public Use
  Company Number: US-ASTELLAS-2012US004273

PATIENT
  Sex: Male

DRUGS (6)
  1. TARCEVA [Suspect]
     Dosage: 150 MG, UID/QD
     Route: 048
     Dates: start: 20110301
  2. COUMADIN [Concomitant]
     Indication: PRODUCT USED FOR UNKNOWN INDICATION
     Dosage: 4 MG, UID/QD
     Route: 048
     Dates: start: 20090902
  3. TARCEVA [Suspect]
     Indication: NON-SMALL CELL LUNG CANCER
     Dosage: 25 MG, QOD
     Route: 048
     Dates: start: 20090212
  4. TARCEVA [Suspect]
     Dosage: 50 MG, UID/QD
     Route: 048
     Dates: end: 20110801
  5. PROMETHAZINE [Concomitant]
     Indication: NAUSEA
     Dosage: 25 MG, UNKNOWN/D
     Route: 048
     Dates: start: 20090320, end: 20120406
  6. LISINOPRIL [Concomitant]
     Indication: BLOOD PRESSURE
     Dosage: 20 UG, UID/QD
     Route: 048
     Dates: start: 20090902

REACTIONS (14)
  - VASCULITIS [None]
  - RENAL FAILURE [None]
  - INCORRECT DOSE ADMINISTERED [None]
  - RASH [None]
  - DERMATITIS ACNEIFORM [None]
  - LUNG CONSOLIDATION [None]
  - FUNGAL SKIN INFECTION [None]
  - SKIN TOXICITY [None]
  - NAUSEA [None]
  - FOLLICULITIS [None]
  - HAEMATURIA [None]
  - INAPPROPRIATE SCHEDULE OF DRUG ADMINISTRATION [None]
  - HENOCH-SCHONLEIN PURPURA [None]
  - PNEUMONIA [None]
